FAERS Safety Report 24825195 (Version 1)
Quarter: 2025Q1

REPORT INFORMATION
  Report Type: Spontaneous
  Country: US (occurrence: None)
  Receive Date: 20250109
  Receipt Date: 20250109
  Transmission Date: 20250408
  Serious: No
  Sender: FDA-CTU
  Company Number: None

PATIENT
  Age: 3 Year
  Sex: Male
  Weight: 14.85 kg

DRUGS (2)
  1. CIPROFLOXACIN\DEXAMETHASONE [Suspect]
     Active Substance: CIPROFLOXACIN\DEXAMETHASONE
     Indication: Conjunctivitis
     Dosage: 4 GTT  DROP(S) INTRAOCULAR ?
     Route: 031
     Dates: start: 20250105, end: 20250105
  2. CIPRODEX [Concomitant]
     Active Substance: CIPROFLOXACIN HYDROCHLORIDE\DEXAMETHASONE
     Dates: start: 20250105, end: 20250106

REACTIONS (2)
  - Product prescribing error [None]
  - Wrong product administered [None]

NARRATIVE: CASE EVENT DATE: 20250105
